FAERS Safety Report 5447494-0 (Version None)
Quarter: 2007Q3

REPORT INFORMATION
  Report Type: 
  Country: None (occurrence: None)
  Receive Date: 20070905
  Receipt Date: 20070905
  Transmission Date: 20080115
  Serious: Yes (Other)
  Sender: FDA-Public Use
  Company Number: None

PATIENT
  Age: 57 Year
  Sex: Female
  Weight: 74.8435 kg

DRUGS (1)
  1. REQUIP [Suspect]
     Indication: RESTLESS LEGS SYNDROME
     Dosage: 1 TABLET ONCE DAILY PO
     Route: 048
     Dates: start: 20060401, end: 20070831

REACTIONS (6)
  - COMPULSIONS [None]
  - ECONOMIC PROBLEM [None]
  - HYPERPHAGIA [None]
  - MAJOR DEPRESSION [None]
  - OBSESSIVE-COMPULSIVE DISORDER [None]
  - WEIGHT INCREASED [None]
